FAERS Safety Report 20331281 (Version 1)
Quarter: 2022Q1

REPORT INFORMATION
  Report Type: Spontaneous
  Country: US (occurrence: None)
  Receive Date: 20220112
  Receipt Date: 20220112
  Transmission Date: 20220423
  Serious: Yes (Hospitalization)
  Sender: FDA-Public Use
  Company Number: None

PATIENT
  Sex: Female

DRUGS (1)
  1. MAVYRET [Suspect]
     Active Substance: GLECAPREVIR\PIBRENTASVIR
     Indication: Hepatitis C
     Dosage: 100-40 MG  DAILY ORAL??TO ON  HOLD?
     Route: 048
     Dates: start: 20211209

REACTIONS (4)
  - Dyspnoea [None]
  - Fluid retention [None]
  - Cholelithiasis [None]
  - Therapy cessation [None]
